FAERS Safety Report 10178363 (Version 1)
Quarter: 2014Q2

REPORT INFORMATION
  Report Type: Spontaneous
  Country: US (occurrence: US)
  Receive Date: 20140519
  Receipt Date: 20140519
  Transmission Date: 20141212
  Serious: No
  Sender: FDA-Public Use
  Company Number: US-SHIRE-US201402228

PATIENT
  Age: 41 Year
  Sex: Female
  Weight: 97.51 kg

DRUGS (8)
  1. VYVANSE [Suspect]
     Indication: ATTENTION DEFICIT/HYPERACTIVITY DISORDER
     Dosage: 30 MG, 1X/DAY:QD
     Route: 048
     Dates: start: 2014, end: 20140430
  2. VYVANSE [Suspect]
     Dosage: 50 MG, 1X/DAY:QD
     Route: 048
     Dates: start: 20140501
  3. BUPRION [Concomitant]
     Indication: ANXIETY
     Dosage: UNK, 1X/DAY:QD
     Route: 065
  4. BUPRION [Concomitant]
     Indication: ATTENTION DEFICIT/HYPERACTIVITY DISORDER
  5. PROZAC [Concomitant]
     Indication: ANXIETY
     Dosage: UNK(LOW DOSE), 1X/DAY:QD
     Route: 065
     Dates: start: 2013
  6. PROZAC [Concomitant]
     Indication: DEPRESSION
  7. ZYRTEC [Concomitant]
     Indication: HYPERSENSITIVITY
     Dosage: 25 MG, 1X/DAY:QD (AT NIGHT)
     Route: 065
  8. LORATADINE [Concomitant]
     Indication: HYPERSENSITIVITY
     Dosage: 10 MG, 1X/DAY:QD (IN THE MORNING)
     Route: 065

REACTIONS (1)
  - Hypoaesthesia [Not Recovered/Not Resolved]
